FAERS Safety Report 22049231 (Version 1)
Quarter: 2023Q1

REPORT INFORMATION
  Report Type: Spontaneous
  Country: US (occurrence: None)
  Receive Date: 20230228
  Receipt Date: 20230228
  Transmission Date: 20230418
  Serious: Yes (Hospitalization, Disabling)
  Sender: FDA-Public Use
  Company Number: None

PATIENT
  Age: 49 Year
  Sex: Female
  Weight: 79.2 kg

DRUGS (3)
  1. LEVOFLOXACIN [Suspect]
     Active Substance: LEVOFLOXACIN
     Indication: Staphylococcal infection
     Dosage: 7 CAPSULES DAILY ORAL?
     Route: 048
     Dates: start: 20221226, end: 20230104
  2. MUPIROCIN [Concomitant]
     Active Substance: MUPIROCIN
  3. ADVIL [Concomitant]

REACTIONS (6)
  - Arthralgia [None]
  - Joint swelling [None]
  - Palpitations [None]
  - Muscle spasms [None]
  - Feeling abnormal [None]
  - Gait disturbance [None]

NARRATIVE: CASE EVENT DATE: 20230102
